FAERS Safety Report 11865585 (Version 1)
Quarter: 2015Q4

REPORT INFORMATION
  Report Type: Spontaneous
  Country: FR (occurrence: FR)
  Receive Date: 20151223
  Receipt Date: 20151223
  Transmission Date: 20160305
  Serious: Yes (Hospitalization)
  Sender: FDA-Public Use
  Company Number: FR-GE HEALTHCARE MEDICAL DIAGNOSTICS-OMPQ-PR-1512S-3182

PATIENT
  Age: 53 Year
  Sex: Male

DRUGS (3)
  1. XENETIX [Suspect]
     Active Substance: IOBITRIDOL
     Dosage: DOSE NOT REPORTED
     Route: 042
     Dates: start: 20151006, end: 20151006
  2. OMNIPAQUE [Suspect]
     Active Substance: IOHEXOL
     Indication: PULMONARY TUBERCULOSIS
     Route: 042
     Dates: start: 20151103, end: 20151103
  3. OMNIPAQUE [Suspect]
     Active Substance: IOHEXOL
     Indication: DIAGNOSTIC PROCEDURE

REACTIONS (1)
  - Acute kidney injury [Recovered/Resolved]

NARRATIVE: CASE EVENT DATE: 20151103
